FAERS Safety Report 7322486-5 (Version None)
Quarter: 2011Q1

REPORT INFORMATION
  Report Type: 
  Country: None (occurrence: None)
  Receive Date: 20110301
  Receipt Date: 20101008
  Transmission Date: 20110831
  Serious: Yes (Other)
  Sender: FDA-Public Use
  Company Number: US-BAYER-201022783NA

PATIENT
  Sex: Female
  Weight: 113.38 kg

DRUGS (3)
  1. UNCODEABLE ^UNCLASSIFIABLE^ [Concomitant]
     Indication: KIDNEY INFECTION
     Dosage: UNK
     Dates: start: 20000101
  2. MULTI-VITAMINS [Concomitant]
  3. YAZ [Suspect]
     Indication: ORAL CONTRACEPTION
     Dosage: UNK
     Dates: start: 20070801, end: 20100301

REACTIONS (4)
  - GASTROINTESTINAL DISORDER [None]
  - CHOLECYSTITIS [None]
  - GALLBLADDER DISORDER [None]
  - POST CHOLECYSTECTOMY SYNDROME [None]
